FAERS Safety Report 23703305 (Version 2)
Quarter: 2024Q2

REPORT INFORMATION
  Report Type: Spontaneous
  Country: US (occurrence: US)
  Receive Date: 20240403
  Receipt Date: 20240411
  Transmission Date: 20240716
  Serious: Yes (Hospitalization, Other)
  Sender: FDA-Public Use
  Company Number: US-SA-SAC20240325000309

PATIENT

DRUGS (1)
  1. LARONIDASE [Suspect]
     Active Substance: LARONIDASE
     Indication: Mucopolysaccharidosis I
     Dosage: 31.9 (UNITS NOT PROVIDED), QW
     Route: 042
     Dates: start: 20090924

REACTIONS (7)
  - Vascular device infection [Unknown]
  - Spinal cord compression [Unknown]
  - Cardiac valve vegetation [Recovered/Resolved]
  - Back pain [Not Recovered/Not Resolved]
  - Shunt malfunction [Unknown]
  - Medical device removal [Unknown]
  - Ear tube removal [Unknown]

NARRATIVE: CASE EVENT DATE: 20210301
